FAERS Safety Report 6957500-X (Version None)
Quarter: 2010Q3

REPORT INFORMATION
  Report Type: 
  Country: None (occurrence: None)
  Receive Date: 20100831
  Receipt Date: 20091006
  Transmission Date: 20110219
  Serious: No
  Sender: FDA-Public Use
  Company Number: A0810567A

PATIENT
  Age: 54 Year
  Sex: Female

DRUGS (2)
  1. ALBENZA [Suspect]
     Indication: ASCARIASIS
     Dosage: 200MG TWICE PER DAY
     Route: 048
     Dates: start: 20090725
  2. NO CONCURRENT MEDICATION [Concomitant]

REACTIONS (1)
  - DRUG INEFFECTIVE [None]
